FAERS Safety Report 4845309-2 (Version None)
Quarter: 2005Q4

REPORT INFORMATION
  Report Type: 
  Country: None (occurrence: None)
  Receive Date: 20051205
  Receipt Date: 20051027
  Transmission Date: 20060501
  Serious: Yes (Life-Threatening, Hospitalization, Other)
  Sender: FDA-Public Use
  Company Number: BE-GLAXOSMITHKLINE-B0398789A

PATIENT
  Age: 28 Year
  Sex: Female

DRUGS (2)
  1. LAMOTRIGINE [Suspect]
     Indication: EPILEPSY
     Dosage: 25MG TWICE PER DAY
     Dates: start: 20050929, end: 20051020
  2. DEPAKENE [Concomitant]
     Indication: EPILEPSY
     Dosage: 500MG THREE TIMES PER DAY
     Route: 048
     Dates: start: 20050401

REACTIONS (10)
  - DYSPHAGIA [None]
  - EPSTEIN-BARR VIRUS INFECTION [None]
  - LIVER DISORDER [None]
  - MUCOSAL EROSION [None]
  - PHARYNGOLARYNGEAL PAIN [None]
  - PYREXIA [None]
  - RASH [None]
  - RASH MACULO-PAPULAR [None]
  - SKIN LESION [None]
  - STEVENS-JOHNSON SYNDROME [None]
